FAERS Safety Report 15355784 (Version 1)
Quarter: 2018Q3

REPORT INFORMATION
  Report Type: Spontaneous
  Country: US (occurrence: US)
  Receive Date: 20180830
  Receipt Date: 20180830
  Transmission Date: 20181010
  Serious: No
  Sender: FDA-Public Use
  Company Number: None

PATIENT
  Age: 36 Year
  Sex: Female
  Weight: 52.65 kg

DRUGS (3)
  1. FENUGREEK [Concomitant]
     Active Substance: FENUGREEK SEED
  2. HYDROCODONE?ACETAMIN 5?325 MG [Suspect]
     Active Substance: ACETAMINOPHEN\HYDROCODONE
     Indication: PROCEDURAL PAIN
     Dosage: ?          QUANTITY:1 TABLET(S);?
     Route: 048
     Dates: start: 20180828, end: 20180830
  3. PRENATAL VITAMINS [Concomitant]
     Active Substance: VITAMINS

REACTIONS (1)
  - Spinal pain [None]

NARRATIVE: CASE EVENT DATE: 20180829
